FAERS Safety Report 5045773-2 (Version None)
Quarter: 2006Q3

REPORT INFORMATION
  Report Type: 
  Country: None (occurrence: None)
  Receive Date: 20060710
  Receipt Date: 20051115
  Transmission Date: 20061208
  Serious: Yes (Hospitalization, Disabling, Other)
  Sender: FDA-Public Use
  Company Number: PHNU2005DE03789

PATIENT
  Age: 62 Year
  Sex: Female
  Weight: 55 kg

DRUGS (27)
  1. PULMICORT [Concomitant]
     Dosage: 2 UNK, BID
     Route: 065
  2. CLINDAMYCIN [Concomitant]
     Route: 042
  3. ZOMETA [Suspect]
     Indication: PANCREATIC CARCINOMA METASTATIC
     Dosage: 4 MG, UNK
     Route: 042
     Dates: start: 20030213, end: 20050518
  4. AREDIA [Suspect]
     Indication: PANCREATIC CARCINOMA METASTATIC
     Dosage: 60 TO 90 MG, QMO
     Route: 042
     Dates: start: 20020702, end: 20030206
  5. STREPTOZOTOCIN [Suspect]
     Indication: PANCREATIC CARCINOMA METASTATIC
     Dosage: 500 MG/M2, UNK
     Route: 065
     Dates: start: 20041001
  6. FLUOROURACIL [Suspect]
     Indication: PANCREATIC CARCINOMA METASTATIC
     Dosage: 400 MG/M2, UNK
     Route: 065
     Dates: start: 20041001
  7. FOLIC ACID [Suspect]
     Indication: PANCREATIC CARCINOMA METASTATIC
     Dosage: 200 MG/M2, UNK
     Route: 065
     Dates: start: 20041001
  8. INTERFERON ALFA [Concomitant]
     Indication: PANCREATIC CARCINOMA METASTATIC
     Dosage: 2.5 MIU, UNK
     Route: 058
     Dates: start: 20021202, end: 20040801
  9. SANDOSTATIN LAR [Concomitant]
     Dosage: 30 MG, QMO
     Route: 030
     Dates: start: 20020701
  10. SANDOSTATIN [Concomitant]
     Route: 065
     Dates: start: 20020702
  11. NAVOBAN [Concomitant]
     Dosage: 5 MG, UNK
     Route: 065
     Dates: start: 20041001
  12. DEXAMETHASONE [Concomitant]
     Dosage: 8 MG, UNK
     Route: 065
     Dates: start: 20041001
  13. VERGENTAN [Concomitant]
     Dosage: 100 MG, UNK
     Route: 065
     Dates: start: 20050501
  14. OMEPRAZOLE [Concomitant]
     Dosage: 40 MG, QD
     Route: 065
  15. FUROSEMIDE [Concomitant]
     Dosage: 60 MG, QD
     Route: 065
  16. ACETYLSALICYLIC ACID SRT [Concomitant]
     Dosage: 100 MG, QD
     Route: 065
  17. NEURONTIN [Concomitant]
     Dosage: 800 MG, TID
     Route: 048
  18. SAROTEN [Concomitant]
     Dosage: 75 MG, BID
     Route: 065
  19. FENTANYL TRANSDERMAL SYSTEM [Concomitant]
     Dosage: 75 UG, Q72H
     Route: 065
  20. NOVALGIN [Concomitant]
     Dosage: 30 UNK, Q4H
     Route: 065
  21. MOVICOL [Concomitant]
     Dosage: 1 DF, QD
     Route: 065
  22. ACC [Concomitant]
     Dosage: 600 MG, QD
     Route: 065
  23. PROTAPHAN [Concomitant]
     Indication: DIABETES MELLITUS INSULIN-DEPENDENT
     Dosage: 8 UNK, QD
     Route: 065
  24. ACTRAPID HUMAN [Concomitant]
     Indication: DIABETES MELLITUS INSULIN-DEPENDENT
     Route: 065
  25. FERRO ^SANOL^ [Concomitant]
     Dosage: 30 UNK, BID
     Route: 065
  26. AMOXICILLIN [Concomitant]
     Dosage: 750 MG, BID
     Route: 065
  27. LEFAX [Concomitant]
     Dosage: 2 DF, TID
     Route: 065

REACTIONS (8)
  - BONE DISORDER [None]
  - INFLAMMATION [None]
  - OSTEONECROSIS [None]
  - SINUS DISORDER [None]
  - TOOTH DEPOSIT [None]
  - TOOTH DISORDER [None]
  - TOOTH EXTRACTION [None]
  - WOUND DEHISCENCE [None]
